FAERS Safety Report 12314530 (Version 1)
Quarter: 2016Q2

REPORT INFORMATION
  Report Type: Spontaneous
  Country: US (occurrence: US)
  Receive Date: 20160428
  Receipt Date: 20160428
  Transmission Date: 20160815
  Serious: Yes (Hospitalization, Other)
  Sender: FDA-Public Use
  Company Number: US-GLAXOSMITHKLINE-US2016058852

PATIENT
  Age: 76 Year
  Sex: Male

DRUGS (2)
  1. BREO ELLIPTA [Suspect]
     Active Substance: FLUTICASONE FUROATE\VILANTEROL TRIFENATATE
     Indication: PRODUCT USED FOR UNKNOWN INDICATION
  2. SPIRIVA [Concomitant]
     Active Substance: TIOTROPIUM BROMIDE MONOHYDRATE

REACTIONS (7)
  - Weaning failure [Recovered/Resolved]
  - Small intestinal perforation [Unknown]
  - Mechanical ventilation [Recovered/Resolved]
  - Acute respiratory failure [Recovered/Resolved]
  - Large intestinal obstruction [Unknown]
  - Malaise [Unknown]
  - Intestinal operation [Unknown]

NARRATIVE: CASE EVENT DATE: 201601
